FAERS Safety Report 20375678 (Version 1)
Quarter: 2022Q1

REPORT INFORMATION
  Report Type: Spontaneous
  Country: US (occurrence: None)
  Receive Date: 20220125
  Receipt Date: 20220125
  Transmission Date: 20220423
  Serious: No
  Sender: FDA-Public Use
  Company Number: None

PATIENT
  Age: 68 Year
  Sex: Female

DRUGS (1)
  1. SILDENAFIL CITRATE [Suspect]
     Active Substance: SILDENAFIL CITRATE
     Indication: Pulmonary arterial hypertension
     Dosage: FREQUENCY : 3 TIMES A DAY;?
     Route: 048
     Dates: start: 202011

REACTIONS (8)
  - Fluid retention [None]
  - Oedema peripheral [None]
  - Burning sensation [None]
  - Inflammation [None]
  - Skin tightness [None]
  - Abdominal pain upper [None]
  - Abdominal rigidity [None]
  - Erythema [None]

NARRATIVE: CASE EVENT DATE: 20220101
